FAERS Safety Report 13919298 (Version 1)
Quarter: 2017Q3

REPORT INFORMATION
  Report Type: Spontaneous
  Country: US (occurrence: US)
  Receive Date: 20170830
  Receipt Date: 20170830
  Transmission Date: 20171127
  Serious: No
  Sender: FDA-Public Use
  Company Number: US-PERRIGO-16US021677

PATIENT
  Age: 71 Year
  Sex: Female
  Weight: 68.27 kg

DRUGS (1)
  1. NICOTINE POLACRILEX [Suspect]
     Active Substance: NICOTINE
     Indication: SMOKING CESSATION THERAPY
     Dosage: 4 MG, EVERY 2 HOURS
     Route: 002
     Dates: start: 20161103, end: 20161104

REACTIONS (4)
  - Erythema [Recovered/Resolved]
  - Dry skin [Not Recovered/Not Resolved]
  - Blister [Recovered/Resolved]
  - Hypersensitivity [Not Recovered/Not Resolved]

NARRATIVE: CASE EVENT DATE: 20161104
